FAERS Safety Report 8349212-5 (Version None)
Quarter: 2012Q2

REPORT INFORMATION
  Report Type: 
  Country: None (occurrence: None)
  Receive Date: 20120510
  Receipt Date: 20120502
  Transmission Date: 20120825
  Serious: Yes (Hospitalization)
  Sender: FDA-Public Use
  Company Number: PHRM2008FR00805

PATIENT
  Sex: Male

DRUGS (12)
  1. COMTAN [Concomitant]
     Dosage: 3 DF, QD
     Route: 048
  2. SOTALOL HCL [Concomitant]
  3. ZOLPIDEM TARTRATE [Concomitant]
  4. OMIX [Concomitant]
  5. MODOPAR [Concomitant]
     Dosage: 3 DF
     Route: 048
  6. REPAGLINIDE [Concomitant]
     Dosage: 1 DF
     Route: 048
  7. FENOFIBRATE [Concomitant]
  8. LORAZEPAM [Concomitant]
  9. PARLODEL [Suspect]
     Dosage: 1 DF
     Route: 048
     Dates: start: 19970101, end: 20070301
  10. ALLOPURINOL [Concomitant]
  11. MODOPAR [Concomitant]
     Dosage: 375 MG, (125 MG 3 IN DAY)
  12. METFORMIN HCL [Concomitant]
     Dosage: 2 DF
     Route: 048

REACTIONS (5)
  - WEIGHT INCREASED [None]
  - IMPULSE-CONTROL DISORDER [None]
  - PATHOLOGICAL GAMBLING [None]
  - INSOMNIA [None]
  - HYPERPHAGIA [None]
